FAERS Safety Report 20482255 (Version 5)
Quarter: 2022Q4

REPORT INFORMATION
  Report Type: Report from Study
  Country: US (occurrence: US)
  Receive Date: 20220216
  Receipt Date: 20221209
  Transmission Date: 20230112
  Serious: Yes (Hospitalization, Other)
  Sender: FDA-Public Use
  Company Number: US-BEH-2022142186

PATIENT
  Age: 29 Year
  Sex: Female
  Weight: 81.633 kg

DRUGS (4)
  1. HAEGARDA [Suspect]
     Active Substance: HUMAN C1-ESTERASE INHIBITOR
     Indication: Hereditary angioedema
     Dosage: 5000 INTERNATIONAL UNIT, BIW
     Route: 058
     Dates: start: 20220210, end: 20220210
  2. HAEGARDA [Suspect]
     Active Substance: HUMAN C1-ESTERASE INHIBITOR
     Indication: Prophylaxis
     Dosage: UNK
     Route: 058
     Dates: start: 20220210, end: 20220210
  3. HAEGARDA [Suspect]
     Active Substance: HUMAN C1-ESTERASE INHIBITOR
     Dosage: 5000 INTERNATIONAL UNIT, BIW
     Route: 058
     Dates: start: 20220210
  4. HAEGARDA [Suspect]
     Active Substance: HUMAN C1-ESTERASE INHIBITOR
     Dosage: 5000 INTERNATIONAL UNIT, BIW
     Route: 065
     Dates: start: 20220207

REACTIONS (18)
  - Syncope [Unknown]
  - Maternal exposure during pregnancy [Unknown]
  - Feeling abnormal [Recovering/Resolving]
  - Maternal exposure during pregnancy [Recovering/Resolving]
  - Heart rate increased [Recovering/Resolving]
  - Maternal exposure during pregnancy [Recovering/Resolving]
  - Feeling hot [Recovering/Resolving]
  - Maternal exposure during pregnancy [Recovering/Resolving]
  - Chest discomfort [Recovering/Resolving]
  - Maternal exposure during pregnancy [Unknown]
  - Dizziness [Unknown]
  - Maternal exposure during pregnancy [Unknown]
  - Swelling [Unknown]
  - Maternal exposure during pregnancy [Recovering/Resolving]
  - Delivery [Unknown]
  - Hereditary angioedema [Recovering/Resolving]
  - Infusion site bruising [Recovering/Resolving]
  - Infusion site discomfort [Recovering/Resolving]

NARRATIVE: CASE EVENT DATE: 20220210
